FAERS Safety Report 4842094-5 (Version None)
Quarter: 2005Q4

REPORT INFORMATION
  Report Type: 
  Country: None (occurrence: None)
  Receive Date: 20051130
  Receipt Date: 20051122
  Transmission Date: 20060501
  Serious: Yes (Hospitalization)
  Sender: FDA-Public Use
  Company Number: JP-ABBOTT-05P-087-0317888-00

PATIENT
  Age: 4 Year
  Sex: Male

DRUGS (3)
  1. CEFZON SUSPENSION [Suspect]
     Indication: DRUG USE FOR UNKNOWN INDICATION
     Route: 048
     Dates: start: 20051105, end: 20051105
  2. CARBOCISTEINE [Concomitant]
     Indication: DRUG USE FOR UNKNOWN INDICATION
     Route: 048
     Dates: start: 20051105, end: 20051105
  3. MEQUITAZINE [Concomitant]
     Indication: DRUG USE FOR UNKNOWN INDICATION
     Route: 048
     Dates: start: 20051105, end: 20051105

REACTIONS (2)
  - ERYTHEMA MULTIFORME [None]
  - GENERALISED ERYTHEMA [None]
